FAERS Safety Report 17102780 (Version 2)
Quarter: 2019Q4

REPORT INFORMATION
  Report Type: Report from Study
  Country: US (occurrence: US)
  Receive Date: 20191203
  Receipt Date: 20191210
  Transmission Date: 20200122
  Serious: Yes (Death, Life-Threatening, Hospitalization, Other)
  Sender: FDA-Public Use
  Company Number: US-BRISTOL-MYERS SQUIBB COMPANY-BMS-2019-085125

PATIENT
  Age: 77 Year
  Sex: Male
  Weight: 71.21 kg

DRUGS (1)
  1. NIVOLUMAB [Suspect]
     Active Substance: NIVOLUMAB
     Indication: BLADDER CANCER
     Dosage: 480 MILLIGRAM
     Route: 065
     Dates: start: 20190612

REACTIONS (7)
  - Renal impairment [Recovering/Resolving]
  - Azotaemia [Fatal]
  - Constipation [Not Recovered/Not Resolved]
  - Multiple organ dysfunction syndrome [Fatal]
  - Acute respiratory distress syndrome [Recovering/Resolving]
  - Sepsis [Fatal]
  - Deep vein thrombosis [Unknown]

NARRATIVE: CASE EVENT DATE: 20190805
